FAERS Safety Report 5708732-X (Version None)
Quarter: 2008Q2

REPORT INFORMATION
  Report Type: 
  Country: None (occurrence: None)
  Receive Date: 20080410
  Receipt Date: 20080327
  Transmission Date: 20081010
  Serious: Yes (Other)
  Sender: FDA-Public Use
  Company Number: THYM-1000003

PATIENT
  Age: 53 Year
  Sex: Male
  Weight: 83 kg

DRUGS (12)
  1. THYMOGLOBULIN [Suspect]
     Indication: APLASTIC ANAEMIA
     Dosage: 3.7 MG/KG, QD; INTRAVENOUS
     Route: 042
     Dates: start: 20071217, end: 20071218
  2. COLISTIN (COLISTIN) [Concomitant]
  3. NEOMYCIN [Concomitant]
  4. ACYCLOVIR [Concomitant]
  5. ITRACONAZOLE [Concomitant]
  6. OMEPRAZOLE [Concomitant]
  7. PIPERACILLIN SODIUM AND TAZOBACTAM SODIUM [Concomitant]
  8. GENTAMICIN [Concomitant]
  9. METHYLPREDNISOLONE (METHYLPREDNISONONE) [Concomitant]
  10. ACETAMINOPHEN [Concomitant]
  11. MEPERIDINE HCL [Concomitant]
  12. CHLORPHENIRAMINE MALEATE [Concomitant]

REACTIONS (2)
  - ALANINE AMINOTRANSFERASE INCREASED [None]
  - LIVER FUNCTION TEST ABNORMAL [None]
